FAERS Safety Report 7408382-3 (Version None)
Quarter: 2011Q2

REPORT INFORMATION
  Report Type: 
  Country: None (occurrence: None)
  Receive Date: 20110412
  Receipt Date: 20110405
  Transmission Date: 20111010
  Serious: Yes (Other)
  Sender: FDA-Public Use
  Company Number: US-JNJFOC-20100805185

PATIENT
  Sex: Female

DRUGS (4)
  1. LEVAQUIN [Suspect]
     Indication: ILL-DEFINED DISORDER
     Route: 048
  2. ZESTORETIC [Concomitant]
     Indication: HYPERTENSION
     Route: 065
  3. LISINOPRIL [Concomitant]
     Indication: BLOOD PRESSURE
     Route: 065
  4. LEVAQUIN [Suspect]
     Indication: GASTRIC INFECTION
     Route: 048

REACTIONS (5)
  - ROTATOR CUFF SYNDROME [None]
  - TENDON INJURY [None]
  - INFLAMMATION [None]
  - PAIN IN EXTREMITY [None]
  - MENISCUS LESION [None]
